FAERS Safety Report 7529629-9 (Version None)
Quarter: 2011Q2

REPORT INFORMATION
  Report Type: 
  Country: None (occurrence: None)
  Receive Date: 20110607
  Receipt Date: 20110606
  Transmission Date: 20111010
  Serious: No
  Sender: FDA-Public Use
  Company Number: A0871697A

PATIENT
  Age: 69 Year
  Sex: Male

DRUGS (3)
  1. PARNATE [Suspect]
     Indication: DEPRESSION
     Dosage: 30MG PER DAY
     Route: 048
     Dates: start: 20100601
  2. SEROQUEL [Concomitant]
  3. LORAZEPAM [Concomitant]

REACTIONS (1)
  - JOINT SWELLING [None]
